FAERS Safety Report 4455544-3 (Version None)
Quarter: 2004Q3

REPORT INFORMATION
  Report Type: 
  Country: None (occurrence: None)
  Receive Date: 20040917
  Receipt Date: 20040901
  Transmission Date: 20050211
  Serious: Yes (Life-Threatening)
  Sender: FDA-Public Use
  Company Number: 04H-163-0273300-00

PATIENT
  Sex: Male

DRUGS (1)
  1. FENTANYL CITRATE [Suspect]
     Dosage: 1000 MCG/100 CC, INTRAVENOUS
     Route: 042

REACTIONS (6)
  - BLOOD PRESSURE DECREASED [None]
  - COMA [None]
  - MEDICATION ERROR [None]
  - PULSE ABSENT [None]
  - RESPIRATORY ARREST [None]
  - VENTRICULAR TACHYCARDIA [None]
